FAERS Safety Report 10273003 (Version 1)
Quarter: 2014Q1

REPORT INFORMATION
  Report Type: Spontaneous
  Country: US (occurrence: None)
  Receive Date: 20140306
  Receipt Date: 20140306
  Transmission Date: 20141002
  Serious: Yes (Hospitalization, Other)
  Sender: FDA-Public Use
  Company Number: 163-21880-13063520

PATIENT
  Age: 52 Year
  Sex: Male
  Weight: 165 kg

DRUGS (8)
  1. REVLIMID (LENALIDOMIDE) (25 MILLIGRAM, CAPSULES) [Suspect]
     Indication: PLASMA CELL MYELOMA
     Dosage: 25 MG, 21 IN 28 D, PO
     Route: 048
     Dates: start: 20130408
  2. DEPOTESTOSTERONE (TESTOSTERONE CIPIONATE) (UNKNOWN) [Concomitant]
  3. DEXAMETHASONE (DEXAMETHASONE) (TABLETS) [Concomitant]
  4. GABAPENTIN (GABAPENTIN) (CAPSULES) [Concomitant]
  5. LEVOTHYROXINE (LEVOTHYROXINE) (TABLETS) [Concomitant]
  6. TRAMADOL HCL (TRAMADOL HYDROCHLORIDE) (SUSTAINED-RELEASE TABLET) [Concomitant]
  7. ALLOPURINOL (ALLOPURINOL) (TABLETS) [Concomitant]
  8. MORPHINE (MORPHINE) (INJECTION) [Concomitant]

REACTIONS (3)
  - Fluid retention [None]
  - Constipation [None]
  - Deep vein thrombosis [None]
